FAERS Safety Report 17620872 (Version 4)
Quarter: 2020Q2

REPORT INFORMATION
  Report Type: Spontaneous
  Country: JP (occurrence: JP)
  Receive Date: 20200403
  Receipt Date: 20200526
  Transmission Date: 20200713
  Serious: Yes (Hospitalization, Other)
  Sender: FDA-Public Use
  Company Number: JP-PFIZER INC-2020136353

PATIENT
  Age: 75 Year
  Sex: Female
  Weight: 37.5 kg

DRUGS (3)
  1. ALDACTONE A 25MG [Suspect]
     Active Substance: SPIRONOLACTONE
     Dosage: UNK
  2. VYNDAQEL [Suspect]
     Active Substance: TAFAMIDIS MEGLUMINE
     Indication: CARDIAC AMYLOIDOSIS
     Dosage: 80 MG, 1X/DAY
     Route: 048
     Dates: start: 20200214
  3. AZOSEMIDE [Suspect]
     Active Substance: AZOSEMIDE
     Dosage: UNK

REACTIONS (4)
  - Cardiac failure acute [Recovering/Resolving]
  - Orthostatic hypotension [Not Recovered/Not Resolved]
  - Femur fracture [Recovering/Resolving]
  - Fall [Recovering/Resolving]

NARRATIVE: CASE EVENT DATE: 202003
